FAERS Safety Report 12425921 (Version 1)
Quarter: 2016Q2

REPORT INFORMATION
  Report Type: Spontaneous
  Country: GB (occurrence: GB)
  Receive Date: 20160601
  Receipt Date: 20160601
  Transmission Date: 20160815
  Serious: Yes (Disabling)
  Sender: FDA-Public Use
  Company Number: GB-ABBVIE-16P-167-1640898-00

PATIENT
  Age: 48 Year
  Sex: Male

DRUGS (1)
  1. DEPAKOTE [Suspect]
     Active Substance: DIVALPROEX SODIUM
     Indication: MOOD ALTERED
     Dosage: TIME TO ONSET: FEW DAY(S)
     Route: 048
     Dates: start: 201006, end: 20160505

REACTIONS (3)
  - Feeling cold [Not Recovered/Not Resolved]
  - Decreased appetite [Unknown]
  - Abnormal loss of weight [Unknown]

NARRATIVE: CASE EVENT DATE: 2010
